FAERS Safety Report 20733335 (Version 1)
Quarter: 2022Q2

REPORT INFORMATION
  Report Type: Report from Study
  Country: DO (occurrence: DO)
  Receive Date: 20220421
  Receipt Date: 20220421
  Transmission Date: 20220721
  Serious: Yes (Other)
  Sender: FDA-Public Use
  Company Number: DO-ABBVIE-22K-279-4365376-00

PATIENT
  Sex: Male
  Weight: 76.272 kg

DRUGS (1)
  1. HUMIRA [Suspect]
     Active Substance: ADALIMUMAB
     Indication: Psoriatic arthropathy
     Route: 058
     Dates: start: 20121110, end: 20220308

REACTIONS (2)
  - Exostosis [Recovering/Resolving]
  - Discomfort [Recovering/Resolving]
